FAERS Safety Report 9691952 (Version 1)
Quarter: 2013Q4

REPORT INFORMATION
  Report Type: Spontaneous
  Country: VE (occurrence: VE)
  Receive Date: 20131118
  Receipt Date: 20131118
  Transmission Date: 20140711
  Serious: Yes (Other)
  Sender: FDA-Public Use
  Company Number: VE-AMGEN-VENSP2013080704

PATIENT
  Age: 31 Year
  Sex: Female

DRUGS (3)
  1. ENBREL [Suspect]
     Indication: PRODUCT USED FOR UNKNOWN INDICATION
     Dosage: 25 MG, UNK
     Route: 065
  2. NEOTIGASON [Concomitant]
     Dosage: 25 MG, UNK
  3. DIFLUCAN [Concomitant]
     Dosage: 100 MG, UNK

REACTIONS (2)
  - Bronchiectasis [Not Recovered/Not Resolved]
  - Pulmonary mycosis [Not Recovered/Not Resolved]
